FAERS Safety Report 17269571 (Version 1)
Quarter: 2020Q1

REPORT INFORMATION
  Report Type: Spontaneous
  Country: CA (occurrence: CA)
  Receive Date: 20200114
  Receipt Date: 20200114
  Transmission Date: 20200409
  Serious: Yes (Life-Threatening, Other)
  Sender: FDA-Public Use
  Company Number: CA-TEVA-2020-CA-1167783

PATIENT
  Age: 41 Year
  Sex: Female
  Weight: 73 kg

DRUGS (1)
  1. BUPRENORPHINE HYDROCHLORIDE/NALOXONE HYDROCHLORIDE [Suspect]
     Active Substance: BUPRENORPHINE HYDROCHLORIDE\NALOXONE HYDROCHLORIDE
     Indication: DRUG DEPENDENCE
     Route: 048

REACTIONS (7)
  - Homicidal ideation [Unknown]
  - Suicidal behaviour [Unknown]
  - Alopecia [Unknown]
  - Drug dependence [Unknown]
  - Intentional product use issue [Unknown]
  - Anger [Unknown]
  - Aggression [Unknown]
